FAERS Safety Report 13410232 (Version 1)
Quarter: 2017Q2

REPORT INFORMATION
  Report Type: Spontaneous
  Country: US (occurrence: US)
  Receive Date: 20170406
  Receipt Date: 20170406
  Transmission Date: 20170830
  Serious: Yes (Other)
  Sender: FDA-Public Use
  Company Number: US-JNJFOC-20170330798

PATIENT
  Age: 3 Decade
  Sex: Female

DRUGS (2)
  1. TYLENOL [Suspect]
     Active Substance: ACETAMINOPHEN
     Route: 048
  2. TYLENOL [Suspect]
     Active Substance: ACETAMINOPHEN
     Indication: ANALGESIC THERAPY
     Dosage: 3 TIMES DAILY FOR 4 MONTHS
     Route: 048

REACTIONS (3)
  - Impaired gastric emptying [Not Recovered/Not Resolved]
  - Gastrooesophageal reflux disease [Not Recovered/Not Resolved]
  - Gastric disorder [Not Recovered/Not Resolved]
